FAERS Safety Report 5627814-4 (Version None)
Quarter: 2008Q1

REPORT INFORMATION
  Report Type: 
  Country: None (occurrence: None)
  Receive Date: 20080214
  Receipt Date: 20080214
  Transmission Date: 20080703
  Serious: Yes (Other)
  Sender: FDA-Public Use
  Company Number: None

PATIENT
  Age: 48 Year
  Sex: Male

DRUGS (1)
  1. LOTREL [Suspect]
     Dates: start: 20070601

REACTIONS (3)
  - DIZZINESS [None]
  - MYALGIA [None]
  - PARAESTHESIA [None]
